FAERS Safety Report 10538513 (Version 2)
Quarter: 2015Q1

REPORT INFORMATION
  Report Type: Report from Study
  Country: DE (occurrence: DE)
  Receive Date: 20141023
  Receipt Date: 20150325
  Transmission Date: 20150720
  Serious: Yes (Death, Other)
  Sender: FDA-Public Use
  Company Number: DE-BRISTOL-MYERS SQUIBB COMPANY-21512157

PATIENT
  Age: 75 Year
  Sex: Male
  Weight: 65 kg

DRUGS (5)
  1. GRANISETRON [Concomitant]
     Active Substance: GRANISETRON
     Indication: PREMEDICATION
     Dosage: UNK, QWK
     Route: 065
     Dates: start: 20140415, end: 20140520
  2. CETUXIMAB [Suspect]
     Active Substance: CETUXIMAB
     Indication: COLORECTAL CANCER
     Dosage: 400 MG/M2, QD
     Route: 042
     Dates: start: 20140415, end: 20140603
  3. FLUORO URACIL [Concomitant]
     Active Substance: FLUOROURACIL
     Indication: COLORECTAL CANCER METASTATIC
     Dosage: 2000 MG/M2, QWK
     Route: 065
     Dates: start: 20140415, end: 20140603
  4. CALCIUM FOLINATE [Concomitant]
     Active Substance: LEUCOVORIN CALCIUM
     Indication: COLORECTAL CANCER METASTATIC
     Dosage: 500 MG/M2, QWK
     Route: 065
     Dates: start: 20140415, end: 20140603
  5. IRINOTECAN [Concomitant]
     Active Substance: IRINOTECAN
     Indication: COLORECTAL CANCER METASTATIC
     Dosage: 80 MG/M2, QWK
     Route: 065
     Dates: start: 20140415, end: 20140603

REACTIONS (2)
  - Pneumonia [Fatal]
  - Cardiac failure [Fatal]

NARRATIVE: CASE EVENT DATE: 20140603
